FAERS Safety Report 20802553 (Version 1)
Quarter: 2022Q2

REPORT INFORMATION
  Report Type: Spontaneous
  Country: US (occurrence: None)
  Receive Date: 20220509
  Receipt Date: 20220509
  Transmission Date: 20220721
  Serious: Yes (Hospitalization)
  Sender: FDA-Public Use
  Company Number: None

PATIENT
  Age: 40 Year
  Sex: Male
  Weight: 85 kg

DRUGS (1)
  1. SULFAMETHOXAZOLE\TRIMETHOPRIM [Suspect]
     Active Substance: SULFAMETHOXAZOLE\TRIMETHOPRIM
     Indication: Skin bacterial infection
     Dates: start: 20211030, end: 20220223

REACTIONS (10)
  - Arthralgia [None]
  - Gait disturbance [None]
  - Erythema multiforme [None]
  - Urticaria [None]
  - Pruritus [None]
  - Swelling face [None]
  - Rash papular [None]
  - Chest discomfort [None]
  - Atypical mycobacterium test positive [None]
  - Cellulitis [None]

NARRATIVE: CASE EVENT DATE: 20220224
